FAERS Safety Report 6294976-8 (Version None)
Quarter: 2009Q3

REPORT INFORMATION
  Report Type: 
  Country: None (occurrence: None)
  Receive Date: 20090731
  Receipt Date: 20090731
  Transmission Date: 20100115
  Serious: Yes (Other)
  Sender: FDA-Public Use
  Company Number: None

PATIENT
  Sex: Male
  Weight: 97.5234 kg

DRUGS (2)
  1. PEGASYS [Suspect]
     Indication: HEPATITIS C
     Dosage: 180 MCG/0.5ML WEEKLY SQ
     Route: 058
     Dates: start: 20090526, end: 20090625
  2. RIBAVIRIN [Suspect]
     Indication: HEPATITIS C
     Dosage: 200 MG  3 CAP BID PO
     Route: 048
     Dates: start: 20090526, end: 20090625

REACTIONS (4)
  - ANAEMIA [None]
  - DYSKINESIA [None]
  - MUSCLE DISORDER [None]
  - REFUSAL OF TREATMENT BY PATIENT [None]
